FAERS Safety Report 8841074 (Version 2)
Quarter: 2012Q4

REPORT INFORMATION
  Report Type: 
  Country: JP (occurrence: JP)
  Receive Date: 20121015
  Receipt Date: 20121102
  Transmission Date: 20130627
  Serious: Yes (Hospitalization)
  Sender: FDA-Public Use
  Company Number: JP-ELI_LILLY_AND_COMPANY-JP201209002452

PATIENT
  Age: 35 None
  Sex: Female

DRUGS (7)
  1. ZYPREXA [Suspect]
     Indication: SCHIZOPHRENIA
     Dosage: 5 mg, qd
     Route: 048
     Dates: end: 20110613
  2. ZYPREXA [Suspect]
     Dosage: 4 mg, qd
     Route: 048
     Dates: start: 20110613, end: 20110930
  3. ZYPREXA [Suspect]
     Dosage: 3 mg, qd
     Route: 048
     Dates: start: 20110930, end: 20111017
  4. ZYPREXA [Suspect]
     Dosage: 2 mg, qd
     Route: 048
     Dates: start: 20111017, end: 20111118
  5. ZYPREXA [Suspect]
     Dosage: 2 mg, prn
     Route: 048
     Dates: start: 20111118, end: 20120405
  6. ZYPREXA [Suspect]
     Dosage: 2 mg, qd
     Route: 048
     Dates: start: 20120405, end: 20120608
  7. ZYPREXA [Suspect]
     Dosage: 10 mg, qd
     Route: 048
     Dates: start: 20120901

REACTIONS (3)
  - Schizophrenia [Recovered/Resolved]
  - Exposure during pregnancy [Recovered/Resolved]
  - Inappropriate schedule of drug administration [Recovered/Resolved]
